FAERS Safety Report 7637802-4 (Version None)
Quarter: 2011Q3

REPORT INFORMATION
  Report Type: 
  Country: None (occurrence: None)
  Receive Date: 20110727
  Receipt Date: 20110721
  Transmission Date: 20111222
  Serious: Yes (Death, Hospitalization, Disabling, Other)
  Sender: FDA-Public Use
  Company Number: US-CELGENEUS-163-21880-10111492

PATIENT
  Sex: Male
  Weight: 91.254 kg

DRUGS (13)
  1. VYTORIN [Concomitant]
     Dosage: 10/40
     Route: 065
  2. PRILOSEC [Concomitant]
     Dosage: 20
     Route: 065
  3. PLAVIX [Concomitant]
     Indication: PROPHYLAXIS
     Dosage: 75 MILLIGRAM
     Route: 065
  4. DIOVAN [Concomitant]
     Dosage: 160/12.5
     Route: 065
  5. REVLIMID [Suspect]
     Dosage: 25 MILLIGRAM
     Route: 048
     Dates: start: 20101101
  6. METOPROLOL TARTRATE [Concomitant]
     Dosage: 50 MILLIGRAM
     Route: 065
  7. COUMADIN [Concomitant]
     Route: 065
  8. MOXALICAN [Concomitant]
     Dosage: 50
     Route: 065
  9. ASPIRIN [Concomitant]
     Route: 065
  10. VELCADE [Suspect]
     Indication: MULTIPLE MYELOMA
     Route: 065
     Dates: start: 20100101
  11. DEXAMETHASONE [Concomitant]
     Indication: MULTIPLE MYELOMA
     Route: 065
     Dates: start: 20100101
  12. REVLIMID [Suspect]
     Indication: MULTIPLE MYELOMA
     Dosage: 25 MILLIGRAM
     Route: 048
     Dates: start: 20100816, end: 20101001
  13. REVLIMID [Suspect]
     Dosage: 10 MILLIGRAM
     Route: 048
     Dates: start: 20110101, end: 20110201

REACTIONS (5)
  - MULTIPLE MYELOMA [None]
  - NEURALGIA [None]
  - ISCHAEMIC STROKE [None]
  - NEUROPATHY PERIPHERAL [None]
  - BLOOD BILIRUBIN INCREASED [None]
